FAERS Safety Report 9539288 (Version 2)
Quarter: 2013Q4

REPORT INFORMATION
  Report Type: Spontaneous
  Country: US (occurrence: None)
  Receive Date: 20130917
  Receipt Date: 20131008
  Transmission Date: 20140711
  Serious: Yes (Death)
  Sender: FDA-Public Use
  Company Number: ALK-2013-001954

PATIENT
  Age: 56 Year
  Sex: Male

DRUGS (1)
  1. VIVITROL (VIVITROL_NDA) INJECTION, 380MG [Suspect]
     Indication: PRODUCT USED FOR UNKNOWN INDICATION
     Dosage: 380 MG, QMO, INTRAMUSCULAR
     Route: 030
     Dates: start: 20130814

REACTIONS (1)
  - Overdose [None]
